FAERS Safety Report 7531347-8 (Version None)
Quarter: 2011Q2

REPORT INFORMATION
  Report Type: 
  Country: None (occurrence: None)
  Receive Date: 20110608
  Receipt Date: 20110525
  Transmission Date: 20111010
  Serious: Yes (Hospitalization, Other)
  Sender: FDA-Public Use
  Company Number: PHHY2011IL45245

PATIENT
  Age: 50 Year
  Sex: Female

DRUGS (2)
  1. SANDOSTATIN LAR [Suspect]
     Indication: CARCINOID TUMOUR
     Dosage: 20 MG EVERY 28 DAYS
     Dates: start: 20101228
  2. SANDOSTATIN LAR [Suspect]
     Dosage: 20 MG EVERY 28 DAYS
     Route: 030
     Dates: end: 20110504

REACTIONS (4)
  - PULMONARY OEDEMA [None]
  - ABDOMINAL PAIN [None]
  - NEOPLASM MALIGNANT [None]
  - CHEST PAIN [None]
